FAERS Safety Report 16776839 (Version 1)
Quarter: 2019Q4

REPORT INFORMATION
  Report Type: Spontaneous
  Country: US (occurrence: US)
  Receive Date: 20190905
  Receipt Date: 20190905
  Transmission Date: 20200122
  Serious: No
  Sender: FDA-Public Use
  Company Number: None

PATIENT
  Age: 76 Year
  Sex: Male
  Weight: 66.68 kg

DRUGS (4)
  1. TYLENOL 8HR [Concomitant]
     Active Substance: ACETAMINOPHEN
  2. CAPECITABINE. [Suspect]
     Active Substance: CAPECITABINE
     Indication: RECTAL CANCER
     Route: 048
     Dates: start: 20190715, end: 20190903
  3. ATIVAN [Concomitant]
     Active Substance: LORAZEPAM
  4. CAPECITABINE. [Suspect]
     Active Substance: CAPECITABINE
     Indication: RECTAL CANCER
     Route: 048
     Dates: start: 20190715, end: 20190903

REACTIONS (5)
  - Stomatitis [None]
  - Rash [None]
  - Skin exfoliation [None]
  - Diarrhoea [None]
  - Pain of skin [None]

NARRATIVE: CASE EVENT DATE: 20190903
